FAERS Safety Report 4754162-7 (Version None)
Quarter: 2005Q3

REPORT INFORMATION
  Report Type: 
  Country: None (occurrence: None)
  Receive Date: 20050826
  Receipt Date: 20020307
  Transmission Date: 20060218
  Serious: Yes (Hospitalization)
  Sender: FDA-Public Use
  Company Number: JP-ABBOTT-05P-087-0306437-00

PATIENT
  Age: 4 Year
  Sex: Male

DRUGS (2)
  1. ERYTHROCIN [Suspect]
     Indication: BRONCHITIS
     Route: 048
     Dates: start: 20001026, end: 20001029
  2. THEOPHYLLINE [Suspect]
     Indication: BRONCHITIS
     Route: 046
     Dates: start: 20001026, end: 20001029

REACTIONS (1)
  - STATUS EPILEPTICUS [None]
